FAERS Safety Report 18077903 (Version 4)
Quarter: 2020Q4

REPORT INFORMATION
  Report Type: Report from Study
  Country: US (occurrence: US)
  Receive Date: 20200727
  Receipt Date: 20201008
  Transmission Date: 20210113
  Serious: No
  Sender: FDA-Public Use
  Company Number: NVSC2020US209067

PATIENT
  Sex: Female

DRUGS (2)
  1. KISQALI [Suspect]
     Active Substance: RIBOCICLIB
     Route: 048
  2. KISQALI [Suspect]
     Active Substance: RIBOCICLIB
     Indication: PRODUCT USED FOR UNKNOWN INDICATION
     Dosage: UNK
     Route: 048

REACTIONS (14)
  - Pain in extremity [Unknown]
  - Tendonitis [Unknown]
  - Pruritus [Unknown]
  - Arthralgia [Unknown]
  - Dysgeusia [Unknown]
  - Concussion [Unknown]
  - Dehydration [Unknown]
  - Bone pain [Unknown]
  - Rash [Recovered/Resolved with Sequelae]
  - Vomiting [Unknown]
  - Myalgia [Unknown]
  - Malaise [Unknown]
  - Fall [Unknown]
  - Dizziness [Unknown]
